FAERS Safety Report 19460257 (Version 2)
Quarter: 2021Q3

REPORT INFORMATION
  Report Type: Spontaneous
  Country: CH (occurrence: CH)
  Receive Date: 20210625
  Receipt Date: 20210708
  Transmission Date: 20211014
  Serious: Yes (Hospitalization, Other)
  Sender: FDA-Public Use
  Company Number: CH-AMGEN-CHESP2021093036

PATIENT

DRUGS (2)
  1. IMLYGIC [Suspect]
     Active Substance: TALIMOGENE LAHERPAREPVEC
     Dosage: UNK UNK, Q2WK (UPTO 4 ML X 10^8 PFU/ML)
     Route: 026
  2. IMLYGIC [Suspect]
     Active Substance: TALIMOGENE LAHERPAREPVEC
     Indication: DIFFUSE LARGE B-CELL LYMPHOMA
     Dosage: UNK (UPTO 4 ML X 10^8 PFU/ML)
     Route: 026

REACTIONS (14)
  - Blood lactate dehydrogenase increased [Unknown]
  - Influenza like illness [Unknown]
  - Diffuse large B-cell lymphoma [Unknown]
  - Hypophosphataemia [Unknown]
  - Hypoproteinaemia [Unknown]
  - Fatigue [Unknown]
  - Rash erythematous [Unknown]
  - Hypervitaminosis B12 [Unknown]
  - Skin irritation [Unknown]
  - Skin ulcer [Unknown]
  - Investigation [Unknown]
  - Vomiting [Unknown]
  - Blood alkaline phosphatase increased [Unknown]
  - Squamous cell carcinoma [Unknown]
